FAERS Safety Report 6797299-3 (Version None)
Quarter: 2010Q2

REPORT INFORMATION
  Report Type: 
  Country: None (occurrence: None)
  Receive Date: 20100621
  Receipt Date: 20100608
  Transmission Date: 20101027
  Serious: Yes (Hospitalization)
  Sender: FDA-Public Use
  Company Number: B0660848A

PATIENT
  Age: 47 Year
  Sex: Male

DRUGS (7)
  1. ZIDOVUDINE [Suspect]
     Indication: HIV INFECTION
  2. LAMIVUDINE [Suspect]
     Indication: HIV INFECTION
  3. EFAVIRENZ [Suspect]
     Indication: HIV INFECTION
  4. ISONIAZID [Concomitant]
  5. RIFAMPICIN [Concomitant]
  6. PYRAZINAMIDE [Concomitant]
  7. ETHAMBUTOL HYDROCHLORIDE [Concomitant]

REACTIONS (9)
  - ADRENAL INSUFFICIENCY [None]
  - DEHYDRATION [None]
  - HAEMOPTYSIS [None]
  - HYPOTENSION [None]
  - IMMUNE RECONSTITUTION SYNDROME [None]
  - LUNG INFILTRATION [None]
  - PULMONARY TUBERCULOSIS [None]
  - PYREXIA [None]
  - RESPIRATORY FAILURE [None]
